FAERS Safety Report 9643604 (Version 3)
Quarter: 2013Q4

REPORT INFORMATION
  Report Type: Spontaneous
  Country: JP (occurrence: JP)
  Receive Date: 20131024
  Receipt Date: 20131230
  Transmission Date: 20140711
  Serious: Yes (Hospitalization)
  Sender: FDA-Public Use
  Company Number: JP-GLAXOSMITHKLINE-B0930488A

PATIENT
  Age: 47 Year
  Sex: Female

DRUGS (10)
  1. LAMICTAL [Suspect]
     Indication: PROPHYLAXIS
     Dosage: 25MG PER DAY
     Route: 048
     Dates: start: 20120731, end: 20120812
  2. LAMICTAL [Suspect]
     Indication: PROPHYLAXIS
     Dosage: 25MG TWICE PER DAY
     Route: 048
     Dates: start: 20120813, end: 20120826
  3. LAMICTAL [Suspect]
     Indication: PROPHYLAXIS
     Dosage: 50MG TWICE PER DAY
     Route: 048
     Dates: start: 20120827, end: 20120903
  4. ZYPREXA [Concomitant]
     Indication: DEPRESSION
     Route: 048
     Dates: start: 20111216, end: 20120923
  5. LENDORMIN [Concomitant]
     Indication: INSOMNIA
     Dosage: .25MG PER DAY
     Route: 048
     Dates: start: 20111216
  6. SEROQUEL [Concomitant]
     Indication: FEELING ABNORMAL
     Route: 048
     Dates: start: 20111222, end: 20120923
  7. CEPHADOL [Concomitant]
     Indication: DIZZINESS
     Route: 048
     Dates: start: 20111222, end: 20120923
  8. LUNESTA [Concomitant]
     Indication: INSOMNIA
     Route: 048
     Dates: start: 20120612, end: 20120923
  9. LIMAS [Concomitant]
     Indication: PROPHYLAXIS
     Route: 048
     Dates: start: 20120727, end: 20120923
  10. DESYREL [Concomitant]
     Indication: INSOMNIA
     Route: 048
     Dates: start: 20120820, end: 20120923

REACTIONS (6)
  - Rash [Recovered/Resolved]
  - Pruritus [Recovered/Resolved]
  - Ocular hyperaemia [Recovered/Resolved]
  - Pyrexia [Recovered/Resolved]
  - Pruritus [Recovered/Resolved]
  - Drug eruption [Recovered/Resolved]
